FAERS Safety Report 19568653 (Version 1)
Quarter: 2021Q3

REPORT INFORMATION
  Report Type: Report from Study
  Country: CA (occurrence: CA)
  Receive Date: 20210714
  Receipt Date: 20210714
  Transmission Date: 20211014
  Serious: Yes (Death)
  Sender: FDA-Public Use
  Company Number: CA-SEATTLE GENETICS-2021SGN01767

PATIENT
  Age: 65 Year
  Sex: Female

DRUGS (1)
  1. TUCATINIB [Suspect]
     Active Substance: TUCATINIB
     Indication: BREAST CANCER

REACTIONS (3)
  - Vomiting [Unknown]
  - Diarrhoea [Unknown]
  - Death [Fatal]

NARRATIVE: CASE EVENT DATE: 202103
